FAERS Safety Report 6354468-4 (Version None)
Quarter: 2009Q3

REPORT INFORMATION
  Report Type: 
  Country: None (occurrence: None)
  Receive Date: 20090909
  Receipt Date: 20090826
  Transmission Date: 20100115
  Serious: Yes (Hospitalization)
  Sender: FDA-Public Use
  Company Number: 232208K08USA

PATIENT
  Age: 50 Year
  Sex: Female
  Weight: 66 kg

DRUGS (5)
  1. REBIF [Suspect]
     Indication: MULTIPLE SCLEROSIS
     Dosage: 44 MCG, 3 IN 1 WEEKS, SUBCUTANEOUS
     Route: 058
     Dates: start: 20070115
  2. XANAX [Concomitant]
  3. ZOLOFT [Concomitant]
  4. CARBAMAZEPINE [Concomitant]
  5. VICODIN [Concomitant]

REACTIONS (6)
  - ABDOMINAL PAIN [None]
  - BLOOD PRESSURE INCREASED [None]
  - GASTROINTESTINAL INJURY [None]
  - HERNIA REPAIR [None]
  - POST PROCEDURAL COMPLICATION [None]
  - VOMITING [None]
